FAERS Safety Report 10196561 (Version 2)
Quarter: 2014Q2

REPORT INFORMATION
  Report Type: Spontaneous
  Country: JP (occurrence: JP)
  Receive Date: 20140527
  Receipt Date: 20140527
  Transmission Date: 20141212
  Serious: Yes (Other)
  Sender: FDA-Public Use
  Company Number: JP-OTSUKA-JP-2014-13230

PATIENT
  Sex: 0

DRUGS (1)
  1. SAMSCA [Suspect]
     Indication: OEDEMA DUE TO HEPATIC DISEASE
     Dosage: UNK
     Route: 048

REACTIONS (3)
  - Glomerular filtration rate decreased [Unknown]
  - Hypernatraemia [Unknown]
  - Diarrhoea [Unknown]
